FAERS Safety Report 10180106 (Version 1)
Quarter: 2014Q2

REPORT INFORMATION
  Report Type: Spontaneous
  Country: US (occurrence: US)
  Receive Date: 20140519
  Receipt Date: 20140519
  Transmission Date: 20141212
  Serious: No
  Sender: FDA-Public Use
  Company Number: US-AMGEN INC.-USASP2013077421

PATIENT
  Age: 61 Year
  Sex: Female

DRUGS (7)
  1. PROLIA [Suspect]
     Indication: OSTEOPOROSIS
     Route: 065
  2. BABY ASPIRIN [Concomitant]
     Dosage: UNK UNK, 3 TIMES/WK
  3. BUPROPION [Concomitant]
  4. DEPAKOTE [Concomitant]
  5. MULTIVITAMIN                       /00097801/ [Concomitant]
  6. CALCIUM [Concomitant]
  7. VITAMIN D                          /00107901/ [Concomitant]

REACTIONS (8)
  - Red blood cells urine positive [Unknown]
  - White blood cells urine positive [Unknown]
  - Protein urine present [Unknown]
  - Blood urine present [Unknown]
  - Injection site pruritus [Unknown]
  - Dry skin [Unknown]
  - Burning sensation [Unknown]
  - Pruritus [Unknown]
